FAERS Safety Report 6631494-9 (Version None)
Quarter: 2010Q1

REPORT INFORMATION
  Report Type: 
  Country: None (occurrence: None)
  Receive Date: 20100312
  Receipt Date: 20100301
  Transmission Date: 20100710
  Serious: Yes (Hospitalization)
  Sender: FDA-Public Use
  Company Number: PHHY2010VE12019

PATIENT
  Sex: Female

DRUGS (11)
  1. ACLASTA [Suspect]
     Dosage: 5 MG PER YEAR
     Dates: start: 20081201
  2. MEMANTINE HCL [Concomitant]
     Indication: MEMORY IMPAIRMENT
     Dosage: UNK
  3. SERTRALINE HYDROCHLORIDE [Concomitant]
  4. OMEPRAZOLE [Concomitant]
     Dosage: TWICE A DAY
  5. TAFIL [Concomitant]
     Dosage: UNK
  6. DISGREN [Concomitant]
  7. METAMUCIL-2 [Concomitant]
  8. SENOKOT [Concomitant]
  9. NIMODIPINE [Concomitant]
     Dosage: UNK
  10. METICORTEN [Concomitant]
     Dosage: 5 MG ONCE A DAY
  11. LODAC [Concomitant]
     Indication: PAIN

REACTIONS (3)
  - FALL [None]
  - SURGERY [None]
  - WRIST FRACTURE [None]
